FAERS Safety Report 9725249 (Version 1)
Quarter: 2013Q4

REPORT INFORMATION
  Report Type: Spontaneous
  Country: US (occurrence: None)
  Receive Date: 20131129
  Receipt Date: 20131129
  Transmission Date: 20140711
  Serious: Yes (Hospitalization)
  Sender: FDA-Public Use
  Company Number: SYM-2013-13141

PATIENT
  Age: 62 Year
  Sex: Female

DRUGS (1)
  1. XENAZINE (TETRABENAZINE) (12.5 MILLIGRAM, TABLET)(TETRABENAZINE) [Suspect]
     Indication: TARDIVE DYSKINESIA
     Route: 048
     Dates: start: 201306

REACTIONS (1)
  - Hospitalisation [None]
